FAERS Safety Report 17048439 (Version 3)
Quarter: 2020Q1

REPORT INFORMATION
  Report Type: Spontaneous
  Country: US (occurrence: US)
  Receive Date: 20191119
  Receipt Date: 20200220
  Transmission Date: 20200409
  Serious: Yes (Death)
  Sender: FDA-Public Use
  Company Number: US-PFIZER INC-2019497283

PATIENT
  Age: 64 Year
  Sex: Male

DRUGS (2)
  1. INLYTA [Suspect]
     Active Substance: AXITINIB
     Indication: RENAL CANCER
     Dosage: 1 MG, 2X/DAY(TAKE 2 TABLETS BY MOUTH EVERY 12 HOURS)
     Route: 048
     Dates: start: 201911
  2. INLYTA [Suspect]
     Active Substance: AXITINIB
     Dosage: 2 MG, 2X/DAY (TAKE 2 TABLET BY MOUTH EVERY 12 HOURS)
     Route: 048
     Dates: start: 201911

REACTIONS (4)
  - Hypoaesthesia [Recovered/Resolved]
  - Death [Fatal]
  - Weight decreased [Unknown]
  - Dysphonia [Not Recovered/Not Resolved]

NARRATIVE: CASE EVENT DATE: 20200210
